FAERS Safety Report 8317191-2 (Version None)
Quarter: 2012Q2

REPORT INFORMATION
  Report Type: 
  Country: None (occurrence: None)
  Receive Date: 20120427
  Receipt Date: 20120420
  Transmission Date: 20120825
  Serious: Yes (Hospitalization)
  Sender: FDA-Public Use
  Company Number: US-UCBSA-035075

PATIENT
  Age: 13 Year
  Sex: Female
  Weight: 33.6 kg

DRUGS (14)
  1. CERTOLIZUMAB PEGOL [Suspect]
     Dosage: NO OF DOSES RECEIVED:2
     Route: 058
     Dates: start: 20110613
  2. FLAGYL [Concomitant]
     Indication: VAGINAL INFECTION
     Route: 048
     Dates: start: 20110514, end: 20110523
  3. CERTOLIZUMAB PEGOL [Suspect]
     Indication: CROHN'S DISEASE
     Dosage: NO OF DOSES RECEIVED: 3
     Route: 058
     Dates: start: 20110329, end: 20110427
  4. CERTOLIZUMAB PEGOL [Suspect]
     Dosage: NO OF DOSES RECEIVED:1
     Route: 058
     Dates: start: 20110527, end: 20110527
  5. MULTI-VITAMIN [Concomitant]
     Indication: MEDICAL DIET
     Dosage: 1 TABLET
     Route: 048
     Dates: start: 20020101
  6. ENTOCORT EC [Concomitant]
     Indication: CROHN'S DISEASE
     Route: 048
     Dates: start: 20110208, end: 20110516
  7. LOVAZA [Concomitant]
     Indication: MEDICAL DIET
     Dosage: 1 TABLET
     Route: 048
     Dates: start: 20110214
  8. EXPECTORANT [Concomitant]
     Indication: NASOPHARYNGITIS
     Route: 048
     Dates: start: 20110523, end: 20110527
  9. ENTOCORT EC [Concomitant]
     Route: 048
     Dates: start: 20110517, end: 20110527
  10. VSL#3 [Concomitant]
     Indication: CROHN'S DISEASE
     Dosage: 1 TABLET
     Route: 048
     Dates: start: 20110314
  11. VSL#3 [Concomitant]
     Indication: ROUTINE HEALTH MAINTENANCE
     Dosage: 1 TABLET
     Route: 048
     Dates: start: 20110314
  12. CALCIUM CITRATE [Concomitant]
     Indication: MEDICAL DIET
     Dosage: UNKNOWN DOSE
     Route: 048
     Dates: start: 20100128
  13. TYLENOL (CAPLET) [Concomitant]
     Indication: NASOPHARYNGITIS
     Route: 048
     Dates: start: 20110523, end: 20110528
  14. CHLORAMPHENICOL [Concomitant]
     Indication: VAGINAL INFECTION
     Route: 048
     Dates: start: 20110514, end: 20110527

REACTIONS (3)
  - CANDIDIASIS [None]
  - PYREXIA [None]
  - DIARRHOEA [None]
